FAERS Safety Report 17548053 (Version 2)
Quarter: 2020Q2

REPORT INFORMATION
  Report Type: Report from Study
  Country: None (occurrence: CO)
  Receive Date: 20200317
  Receipt Date: 20200512
  Transmission Date: 20200713
  Serious: Yes (Death, Hospitalization)
  Sender: FDA-Public Use
  Company Number: CO-ABBVIE-20K-036-3322803-00

PATIENT
  Age: 83 Year
  Sex: Male
  Weight: 68 kg

DRUGS (1)
  1. HUMIRA [Suspect]
     Active Substance: ADALIMUMAB
     Indication: COLITIS ULCERATIVE
     Route: 058
     Dates: start: 20200122, end: 20200205

REACTIONS (6)
  - Pneumonia [Fatal]
  - Peau d^orange [Not Recovered/Not Resolved]
  - Orchitis [Not Recovered/Not Resolved]
  - Urinary tract infection [Not Recovered/Not Resolved]
  - Cardio-respiratory arrest [Fatal]
  - Urinary tract infection [Recovered/Resolved]

NARRATIVE: CASE EVENT DATE: 20200215
